FAERS Safety Report 25240033 (Version 1)
Quarter: 2025Q2

REPORT INFORMATION
  Report Type: Spontaneous
  Country: US (occurrence: US)
  Receive Date: 20250425
  Receipt Date: 20250425
  Transmission Date: 20250716
  Serious: Yes (Hospitalization)
  Sender: MYLAN
  Company Number: US-MYLANLABS-2025M1034831

PATIENT
  Age: 21 Year
  Sex: Male

DRUGS (1)
  1. ALLOPURINOL [Suspect]
     Active Substance: ALLOPURINOL
     Indication: Gout
     Dosage: UNK UNK, QD

REACTIONS (4)
  - Immune-mediated hepatitis [Recovered/Resolved]
  - Cholecystitis [Unknown]
  - Drug reaction with eosinophilia and systemic symptoms [Recovered/Resolved]
  - Toxicity to various agents [Recovered/Resolved]
